FAERS Safety Report 22529644 (Version 3)
Quarter: 2024Q1

REPORT INFORMATION
  Report Type: Report from Study
  Country: CN (occurrence: CN)
  Receive Date: 20230607
  Receipt Date: 20240223
  Transmission Date: 20240410
  Serious: Yes (Other)
  Sender: FDA-Public Use
  Company Number: CN-TAKEDA-2023TUS055632

PATIENT
  Age: 29 Year
  Sex: Female
  Weight: 67 kg

DRUGS (11)
  1. VEDOLIZUMAB [Suspect]
     Active Substance: VEDOLIZUMAB
     Indication: Colitis ulcerative
     Dosage: 300 MILLIGRAM
     Route: 042
     Dates: start: 20230213
  2. MESALAMINE [Concomitant]
     Active Substance: MESALAMINE
     Indication: Inflammatory bowel disease
     Dosage: UNK
     Dates: start: 202109, end: 202202
  3. MESALAMINE [Concomitant]
     Active Substance: MESALAMINE
     Dosage: UNK
     Dates: start: 202203
  4. MESALAMINE [Concomitant]
     Active Substance: MESALAMINE
     Dosage: UNK
     Dates: end: 20230213
  5. LIVE COMBINED BIFIDOBACTERIUM, LACTOBACILUS AND ENTEROCOCCUS [Concomitant]
     Indication: Dysbiosis
     Dosage: 420 MILLIGRAM, TID
     Route: 048
     Dates: start: 202204, end: 202303
  6. Live combined bacillus subtilis and enterococcus faecium [Concomitant]
     Indication: Dysbiosis
     Dosage: 500 MILLIGRAM, TID
     Route: 048
     Dates: start: 202204
  7. Lactic acid bacteria complex [Concomitant]
     Indication: Dysbiosis
     Dosage: 0.33 GRAM, TID
     Route: 048
     Dates: start: 202204, end: 20230207
  8. Lactic acid bacteria complex [Concomitant]
     Dosage: 0.33 GRAM, TID
     Route: 048
     Dates: start: 20230208
  9. MESALAMINE [Concomitant]
     Active Substance: MESALAMINE
     Indication: Inflammatory bowel disease
     Dosage: 1000 MILLIGRAM, QID
     Route: 048
     Dates: start: 202208
  10. MESALAMINE [Concomitant]
     Active Substance: MESALAMINE
     Dosage: 4 GRAM, QD
     Route: 050
     Dates: start: 202209
  11. MESALAMINE [Concomitant]
     Active Substance: MESALAMINE
     Dosage: 4 GRAM, QD
     Route: 050
     Dates: start: 20230911, end: 20231228

REACTIONS (5)
  - Pelvic inflammatory disease [Recovered/Resolved]
  - Eosinophilia [Recovered/Resolved]
  - Influenza like illness [Recovered/Resolved]
  - Headache [Recovered/Resolved]
  - Pyrexia [Recovered/Resolved]

NARRATIVE: CASE EVENT DATE: 20230325
